FAERS Safety Report 7190051-9 (Version None)
Quarter: 2010Q4

REPORT INFORMATION
  Report Type: 
  Country: None (occurrence: None)
  Receive Date: 20101223
  Receipt Date: 20101215
  Transmission Date: 20110411
  Serious: Yes (Other)
  Sender: FDA-Public Use
  Company Number: CH-JNJFOC-20101004741

PATIENT
  Age: 55 Year
  Sex: Male

DRUGS (8)
  1. DURAGESIC-100 [Suspect]
     Indication: ILL-DEFINED DISORDER
     Route: 062
  2. IBRUPROFEN [Concomitant]
     Route: 048
  3. TRAMADOL [Concomitant]
     Route: 048
  4. CYMBALTA [Concomitant]
     Route: 048
  5. UNKNOWN MEDICATION [Concomitant]
     Indication: ILL-DEFINED DISORDER
     Route: 065
  6. STILNOX [Concomitant]
     Route: 048
  7. TEMESTA [Concomitant]
     Route: 048
  8. OMEPRAZOLE [Concomitant]
     Route: 048

REACTIONS (3)
  - EPILEPSY [None]
  - INCORRECT DRUG ADMINISTRATION DURATION [None]
  - WRONG TECHNIQUE IN DRUG USAGE PROCESS [None]
